FAERS Safety Report 8824646 (Version 1)
Quarter: 2012Q4

REPORT INFORMATION
  Report Type: 
  Country: US (occurrence: US)
  Receive Date: 20121004
  Receipt Date: 20121004
  Transmission Date: 20130627
  Serious: Yes (Other)
  Sender: FDA-Public Use
  Company Number: PHEH2012US019140

PATIENT
  Sex: Female

DRUGS (2)
  1. AREDIA [Suspect]
     Indication: OSTEOGENESIS IMPERFECTA
     Dosage: 15 mg, once 3-4 months 3 - 4 hour
     Route: 041
  2. CALCIUM [Concomitant]

REACTIONS (6)
  - Aspiration [Unknown]
  - Lower limb fracture [Unknown]
  - Upper limb fracture [Unknown]
  - Vitamin D decreased [Unknown]
  - Bone pain [Unknown]
  - Blood calcium decreased [Unknown]
